FAERS Safety Report 9452766 (Version 3)
Quarter: 2013Q4

REPORT INFORMATION
  Report Type: Spontaneous
  Country: BR (occurrence: BR)
  Receive Date: 20130812
  Receipt Date: 20131025
  Transmission Date: 20140711
  Serious: Yes (Hospitalization, Other)
  Sender: FDA-Public Use
  Company Number: PHHY2013BR085715

PATIENT
  Age: 53 Year
  Sex: Female

DRUGS (1)
  1. RASILEZ AMLO [Suspect]
     Indication: HYPERTENSION
     Dosage: 1 DF(150/5 MG), DAILY
     Route: 048
     Dates: start: 20130614

REACTIONS (7)
  - Amnesia [Not Recovered/Not Resolved]
  - Loss of consciousness [Not Recovered/Not Resolved]
  - Blood pressure inadequately controlled [Recovered/Resolved]
  - Chills [Not Recovered/Not Resolved]
  - Feeling hot [Unknown]
  - Retching [Unknown]
  - Hypoaesthesia [Not Recovered/Not Resolved]
